FAERS Safety Report 9885461 (Version 1)
Quarter: 2014Q1

REPORT INFORMATION
  Report Type: Spontaneous
  Country: US (occurrence: US)
  Receive Date: 20140210
  Receipt Date: 20140210
  Transmission Date: 20141002
  Serious: Yes (Hospitalization)
  Sender: FDA-Public Use
  Company Number: US-BAYER-2014-018954

PATIENT
  Age: 42 Year
  Sex: Female

DRUGS (13)
  1. YASMIN [Suspect]
  2. CREON [PANCREATIN] [Concomitant]
     Dosage: 10 MG, UNK
  3. PENICILLIN VK [Concomitant]
     Dosage: 500 MG, UNK
  4. FLUCONAZOLE [Concomitant]
     Dosage: 150 MG, UNK
  5. LORATADIN [Concomitant]
  6. METROGEL [Concomitant]
  7. NYSTATIN [Concomitant]
  8. GYNAZOLE [Concomitant]
  9. CLINDESSE [Concomitant]
  10. METRONIDAZOLE [Concomitant]
     Dosage: 500 MG, UNK
  11. HYDROCODONE [Concomitant]
     Dosage: 5/500MG
  12. TOURO CC [Concomitant]
  13. DOXYCYCLINE [Concomitant]
     Dosage: 100 MG, UNK

REACTIONS (2)
  - Pulmonary embolism [None]
  - Deep vein thrombosis [None]
